FAERS Safety Report 7437371-8 (Version None)
Quarter: 2011Q2

REPORT INFORMATION
  Report Type: 
  Country: None (occurrence: None)
  Receive Date: 20110421
  Receipt Date: 20110421
  Transmission Date: 20111010
  Serious: Yes (Hospitalization)
  Sender: FDA-Public Use
  Company Number: None

PATIENT
  Sex: Female
  Weight: 11.1 kg

DRUGS (6)
  1. ZOFRAN [Concomitant]
  2. CARBOPLATIN [Suspect]
     Dosage: 380 MG
     Dates: end: 20110312
  3. FLUCONAZOLE [Concomitant]
  4. THIOTEPA [Suspect]
     Dosage: 220 MG
     Dates: end: 20110312
  5. BACTRIM [Concomitant]
  6. KEPPRA [Concomitant]

REACTIONS (6)
  - BLOOD POTASSIUM DECREASED [None]
  - DECREASED ACTIVITY [None]
  - DEHYDRATION [None]
  - FEBRILE NEUTROPENIA [None]
  - DIARRHOEA [None]
  - HYPOPHAGIA [None]
